FAERS Safety Report 7776135-2 (Version None)
Quarter: 2011Q3

REPORT INFORMATION
  Report Type: 
  Country: None (occurrence: None)
  Receive Date: 20110926
  Receipt Date: 20110921
  Transmission Date: 20111222
  Serious: Yes (Hospitalization)
  Sender: FDA-Public Use
  Company Number: US-BRISTOL-MYERS SQUIBB COMPANY-16082117

PATIENT
  Age: 75 Year
  Sex: Male
  Weight: 83 kg

DRUGS (8)
  1. BEVACIZUMAB [Suspect]
     Indication: NON-SMALL CELL LUNG CANCER
     Route: 042
     Dates: start: 20110627
  2. CARBOPLATIN [Suspect]
     Indication: NON-SMALL CELL LUNG CANCER
     Dosage: 1DF IS 6AUC
     Route: 042
     Dates: start: 20110627
  3. MULTI-VITAMIN [Concomitant]
     Dates: start: 20090308
  4. ASPIRIN [Concomitant]
     Dates: start: 20090308
  5. MEGESTROL ACETATE [Concomitant]
     Indication: DECREASED APPETITE
     Dates: start: 20110830
  6. PACLITAXEL [Suspect]
     Indication: NON-SMALL CELL LUNG CANCER
     Route: 042
     Dates: start: 20110627
  7. CARVEDILOL [Concomitant]
     Dates: start: 20110829
  8. DURAGESIC-100 [Concomitant]
     Indication: PAIN
     Dates: start: 20110902

REACTIONS (3)
  - MENTAL STATUS CHANGES [None]
  - MUSCULAR WEAKNESS [None]
  - FAILURE TO THRIVE [None]
